FAERS Safety Report 12536221 (Version 1)
Quarter: 2016Q3

REPORT INFORMATION
  Report Type: Spontaneous
  Country: US (occurrence: US)
  Receive Date: 20160707
  Receipt Date: 20160707
  Transmission Date: 20161109
  Serious: Yes (Other)
  Sender: FDA-Public Use
  Company Number: US-GLAXOSMITHKLINE-US2016GSK095974

PATIENT
  Sex: Male

DRUGS (1)
  1. BREO ELLIPTA [Suspect]
     Active Substance: FLUTICASONE FUROATE\VILANTEROL TRIFENATATE
     Indication: ASTHMA
     Dosage: UNK UNK, 1D
     Dates: start: 2016

REACTIONS (4)
  - Disturbance in attention [Unknown]
  - Adrenal disorder [Unknown]
  - Balance disorder [Unknown]
  - Steroid withdrawal syndrome [Unknown]

NARRATIVE: CASE EVENT DATE: 2016
